FAERS Safety Report 20323948 (Version 1)
Quarter: 2022Q1

REPORT INFORMATION
  Report Type: Spontaneous
  Country: US (occurrence: US)
  Receive Date: 20220111
  Receipt Date: 20220111
  Transmission Date: 20220423
  Serious: No
  Sender: FDA-Public Use
  Company Number: US-MYLANLABS-2021M1090014

PATIENT
  Age: 84 Year
  Sex: Female

DRUGS (3)
  1. MOXIFLOXACIN [Suspect]
     Active Substance: MOXIFLOXACIN
     Indication: Eye disorder prophylaxis
     Dosage: 0.5 PERCENT, QID
     Route: 047
     Dates: start: 20211129
  2. LANTUS [Concomitant]
     Active Substance: INSULIN GLARGINE
     Indication: Type 2 diabetes mellitus
     Dosage: 34 UNITS, QD, EVERY MORNING
  3. METOPROLOL [Concomitant]
     Active Substance: METOPROLOL
     Indication: Neuropathy peripheral
     Dosage: UNK

REACTIONS (2)
  - Headache [Recovered/Resolved]
  - Burning sensation [Unknown]

NARRATIVE: CASE EVENT DATE: 20211129
